FAERS Safety Report 25525257 (Version 1)
Quarter: 2025Q3

REPORT INFORMATION
  Report Type: Spontaneous
  Country: US (occurrence: US)
  Receive Date: 20250707
  Receipt Date: 20250707
  Transmission Date: 20251021
  Serious: No
  Sender: SANOFI AVENTIS
  Company Number: US-SA-2025SA189692

PATIENT
  Sex: Female
  Weight: 87.27 kg

DRUGS (1)
  1. DUPIXENT [Suspect]
     Active Substance: DUPILUMAB
     Indication: Illness
     Dosage: 300 MG, QOW
     Route: 058

REACTIONS (5)
  - Joint swelling [Unknown]
  - Pain in extremity [Unknown]
  - Anosmia [Unknown]
  - Ageusia [Unknown]
  - Headache [Unknown]
